FAERS Safety Report 7103249-2 (Version None)
Quarter: 2010Q4

REPORT INFORMATION
  Report Type: 
  Country: None (occurrence: None)
  Receive Date: 20101115
  Receipt Date: 20101101
  Transmission Date: 20110411
  Serious: Yes (Hospitalization, Other)
  Sender: FDA-Public Use
  Company Number: JP-BAYER-JP-SHR-03-005328

PATIENT
  Age: 52 Year
  Sex: Female

DRUGS (1)
  1. BETAFERON [Suspect]
     Indication: MULTIPLE SCLEROSIS
     Dosage: UNK, EVERY 2D
     Route: 058
     Dates: start: 20010312, end: 20010506

REACTIONS (10)
  - ABASIA [None]
  - BLINDNESS [None]
  - DEMYELINATION [None]
  - DIPLEGIA [None]
  - MENINGITIS [None]
  - MUSCLE SPASTICITY [None]
  - MYELITIS TRANSVERSE [None]
  - NEUROMYELITIS OPTICA [None]
  - PYREXIA [None]
  - QUADRIPLEGIA [None]
